FAERS Safety Report 5997074-3 (Version None)
Quarter: 2008Q4

REPORT INFORMATION
  Report Type: 
  Country: None (occurrence: None)
  Receive Date: 20081212
  Receipt Date: 20081103
  Transmission Date: 20090506
  Serious: No
  Sender: FDA-Public Use
  Company Number: US-ABBOTT-08P-163-0485274-00

PATIENT
  Sex: Female

DRUGS (7)
  1. HUMIRA [Suspect]
     Indication: PSORIATIC ARTHROPATHY
     Route: 058
     Dates: start: 20080109, end: 20080401
  2. HUMIRA [Suspect]
     Indication: PSORIASIS
     Route: 058
     Dates: start: 20080509, end: 20080606
  3. HUMIRA [Suspect]
     Route: 058
     Dates: start: 20080606, end: 20080919
  4. PEGINTERFERON ALFA-2B [Suspect]
     Indication: HEPATITIS C
  5. RIBAVIRIN [Suspect]
     Indication: HEPATITIS C
  6. CITALOPRAM HYDROBROMIDE [Concomitant]
     Indication: DRUG USE FOR UNKNOWN INDICATION
  7. BUSPIRONE HCL [Concomitant]
     Indication: DRUG USE FOR UNKNOWN INDICATION

REACTIONS (4)
  - DRUG INEFFECTIVE [None]
  - OSTEOARTHRITIS [None]
  - PAIN [None]
  - WHITE BLOOD CELL COUNT DECREASED [None]
